FAERS Safety Report 23761122 (Version 2)
Quarter: 2024Q2

REPORT INFORMATION
  Report Type: Spontaneous
  Country: DE (occurrence: DE)
  Receive Date: 20240419
  Receipt Date: 20240606
  Transmission Date: 20240716
  Serious: Yes (Hospitalization)
  Sender: FDA-Public Use
  Company Number: DE-JUBILANT CADISTA PHARMACEUTICALS-2024DE000522

PATIENT
  Age: 53 Year
  Sex: Male

DRUGS (2)
  1. ITRACONAZOLE [Suspect]
     Active Substance: ITRACONAZOLE
     Indication: Dermatitis
     Dosage: 100 MG, ONCE PER DAY
  2. NYSTATIN;ZINC [Concomitant]
     Indication: Antifungal treatment
     Dosage: UNK,  UNK
     Route: 061

REACTIONS (6)
  - Symmetrical drug-related intertriginous and flexural exanthema [Recovered/Resolved]
  - Anal rash [Recovered/Resolved]
  - Erythema [Recovered/Resolved]
  - Skin lesion [Recovered/Resolved]
  - Skin erosion [Recovered/Resolved]
  - Skin maceration [Recovered/Resolved]
